FAERS Safety Report 8373537-0 (Version None)
Quarter: 2012Q2

REPORT INFORMATION
  Report Type: 
  Country: None (occurrence: None)
  Receive Date: 20120521
  Receipt Date: 20110808
  Transmission Date: 20120825
  Serious: No
  Sender: FDA-Public Use
  Company Number: US-TEVA-2011004150

PATIENT
  Sex: Female
  Weight: 52.21 kg

DRUGS (4)
  1. ASPIRIN [Concomitant]
  2. LISINOPRIL [Concomitant]
  3. TREANDA [Suspect]
     Indication: CHRONIC LYMPHOCYTIC LEUKAEMIA
     Route: 042
     Dates: start: 20110401
  4. METOPROLOL [Concomitant]

REACTIONS (6)
  - PRURITUS [None]
  - DRY SKIN [None]
  - WHITE BLOOD CELL COUNT DECREASED [None]
  - SKIN EXFOLIATION [None]
  - PYREXIA [None]
  - WEIGHT DECREASED [None]
